FAERS Safety Report 8314520-0 (Version None)
Quarter: 2012Q2

REPORT INFORMATION
  Report Type: 
  Country: None (occurrence: None)
  Receive Date: 20120426
  Receipt Date: 20120411
  Transmission Date: 20120825
  Serious: Yes (Hospitalization, Other)
  Sender: FDA-Public Use
  Company Number: DE-ROCHE-1058682

PATIENT
  Sex: Female
  Weight: 52 kg

DRUGS (10)
  1. FERRO-FOLGAMMA [Concomitant]
     Dosage: 1X1
  2. AVASTIN [Suspect]
     Indication: BREAST CANCER
     Dosage: MOST RECENT DOSE PRIOR TO SAE: 26/MAR/2012
     Dates: start: 20120123
  3. IBUPROFEN [Concomitant]
     Dates: start: 20120306
  4. CARBOPLATIN [Suspect]
     Indication: BREAST CANCER
     Dosage: MOST RECENT DOSE PRIOR TO SAE: 3/APR/2012
     Dates: start: 20120123, end: 20120410
  5. NEUPOGEN [Concomitant]
     Dates: start: 20120221
  6. ARANESP [Concomitant]
     Dates: start: 20120313
  7. DOXORUBICIN/DOXORUBICIN HYDROCHLORIDE [Suspect]
     Indication: BREAST CANCER
     Dates: start: 20120123, end: 20120410
  8. PACLITAXEL [Suspect]
     Indication: BREAST CANCER
     Dates: start: 20120123, end: 20120410
  9. NEUROBION FORTE [Concomitant]
     Dosage: 1X1
     Dates: start: 20120320
  10. PROCULIN [Concomitant]
     Dates: start: 20120320

REACTIONS (3)
  - EXTRAVASATION [None]
  - ANAEMIA [None]
  - BREAST CELLULITIS [None]
